FAERS Safety Report 12159321 (Version 5)
Quarter: 2016Q4

REPORT INFORMATION
  Report Type: Spontaneous
  Country: US (occurrence: US)
  Receive Date: 20160308
  Receipt Date: 20161129
  Transmission Date: 20170207
  Serious: No
  Sender: FDA-Public Use
  Company Number: US-PFIZER INC-2016084969

PATIENT
  Age: 64 Year
  Sex: Female
  Weight: 97.7 kg

DRUGS (17)
  1. ZOFRAN [Concomitant]
     Active Substance: ONDANSETRON HYDROCHLORIDE
     Indication: VOMITING
  2. LYNPARZA [Concomitant]
     Active Substance: OLAPARIB
     Dosage: 400 MG, 2X/DAY (TAKE 8 CAPSULES BY MOUTH TWO TIMES DAILY)
     Route: 048
  3. SENOKOT [Concomitant]
     Active Substance: SENNOSIDES
     Dosage: 8.5 UNK, UNK (AS DIRECTED. TAKE ONE WITH EVERY OXYCODONE)
     Route: 048
  4. COMPAZINE [Concomitant]
     Active Substance: PROCHLORPERAZINE MALEATE
     Indication: VOMITING
  5. HEP-LOCK [Concomitant]
     Active Substance: HEPARIN SODIUM
     Dosage: 500 IU, UNK
  6. LYRICA [Suspect]
     Active Substance: PREGABALIN
     Indication: NEUROPATHY PERIPHERAL
     Dosage: 75MG CAPSULE, TWO CAPSULES TWO TIMES A DAY
     Route: 048
     Dates: start: 201508
  7. SARNA ANTI-ITCH [Concomitant]
     Indication: PRURITUS
     Dosage: UNK UNK, AS NEEDED
     Route: 061
  8. LYRICA [Suspect]
     Active Substance: PREGABALIN
     Dosage: 75 MG, 2X/DAY
     Route: 048
     Dates: start: 20161116
  9. OXYCODONE [Concomitant]
     Active Substance: OXYCODONE
     Indication: PAIN
     Dosage: 10 MG, AS NEEDED (1 TABLET BY MOUTH EVERY 4 HOURS)
     Route: 048
  10. NORVASC [Concomitant]
     Active Substance: AMLODIPINE BESYLATE
     Indication: HYPERTENSION
     Dosage: 10 MG, DAILY
     Route: 048
     Dates: start: 1990
  11. XANAX [Concomitant]
     Active Substance: ALPRAZOLAM
     Indication: ANXIETY
     Dosage: 2 MG, 3X/DAY (TWO TABLETS (2MG) THREE TIMES A DA)
     Route: 048
     Dates: start: 1990
  12. ZOFRAN [Concomitant]
     Active Substance: ONDANSETRON HYDROCHLORIDE
     Indication: NAUSEA
     Dosage: 8 MG, AS NEEDED (1 TABLET BY MOUTH EVERY 8 HOURS)
     Route: 048
  13. DILAUDID [Concomitant]
     Active Substance: HYDROMORPHONE HYDROCHLORIDE
     Indication: PAIN
     Dosage: UNK UNK, AS NEEDED(TAKE 1-2 TABLET EVERY 4 HOURS)
     Route: 048
  14. SENOKOT [Concomitant]
     Active Substance: SENNOSIDES
     Dosage: 8.8 MG, UNK (TAKE 1 TABLET BY MOUTH AS DIRECTED. TAKE ONE WITH EVERY OXYCODONE)
     Route: 048
  15. PORCINE [Concomitant]
     Dosage: UNK (100IU/ML)
  16. COMPAZINE [Concomitant]
     Active Substance: PROCHLORPERAZINE MALEATE
     Indication: NAUSEA
     Dosage: 10 MG, AS NEEDED (EVERY 6 HOURS)
     Route: 048
  17. TYLENOL [Concomitant]
     Active Substance: ACETAMINOPHEN
     Indication: PYREXIA
     Dosage: 325 MG, AS NEEDED (EVERY 6 HOURS)
     Route: 048

REACTIONS (9)
  - Dry skin [Not Recovered/Not Resolved]
  - Condition aggravated [Not Recovered/Not Resolved]
  - Drug ineffective [Not Recovered/Not Resolved]
  - Peripheral coldness [Not Recovered/Not Resolved]
  - Paraesthesia [Not Recovered/Not Resolved]
  - Musculoskeletal discomfort [Not Recovered/Not Resolved]
  - Gait disturbance [Not Recovered/Not Resolved]
  - Fatigue [Not Recovered/Not Resolved]
  - Neuropathy peripheral [Unknown]

NARRATIVE: CASE EVENT DATE: 2015
